FAERS Safety Report 20911812 (Version 1)
Quarter: 2022Q2

REPORT INFORMATION
  Report Type: Spontaneous
  Country: PL (occurrence: PL)
  Receive Date: 20220603
  Receipt Date: 20220603
  Transmission Date: 20220721
  Serious: Yes (Hospitalization, Disabling)
  Sender: FDA-Public Use
  Company Number: PL-TEVA-2022-PL-2041632

PATIENT
  Age: 17 Year
  Sex: Female

DRUGS (8)
  1. FLUCONAZOLE [Suspect]
     Active Substance: FLUCONAZOLE
     Route: 065
  2. VORICONAZOLE [Suspect]
     Active Substance: VORICONAZOLE
     Route: 065
  3. LEVOFLOXACIN [Concomitant]
     Active Substance: LEVOFLOXACIN
  4. FLOXAL [Concomitant]
     Active Substance: OFLOXACIN
  5. DEXAMETHASONE [Concomitant]
     Active Substance: DEXAMETHASONE
  6. Brolene [Concomitant]
  7. ACYCLOVIR [Concomitant]
     Active Substance: ACYCLOVIR
  8. LOTEMAX [Concomitant]
     Active Substance: LOTEPREDNOL ETABONATE
     Dosage: B.I.D

REACTIONS (3)
  - Endophthalmitis [Recovered/Resolved with Sequelae]
  - Transplant rejection [Unknown]
  - Drug ineffective [Unknown]
